FAERS Safety Report 16464912 (Version 1)
Quarter: 2019Q2

REPORT INFORMATION
  Report Type: Spontaneous
  Country: US (occurrence: US)
  Receive Date: 20190621
  Receipt Date: 20190621
  Transmission Date: 20190711
  Serious: Yes (Other)
  Sender: FDA-Public Use
  Company Number: US-PARI RESPIRATORY EQUIPMENT, INC.-2019PAR00051

PATIENT
  Age: 2 Year
  Sex: Female
  Weight: 11.34 kg

DRUGS (19)
  1. KITABIS PAK [Suspect]
     Active Substance: TOBRAMYCIN
     Indication: PROPHYLAXIS
     Dosage: 300 MG, 2X/DAY 2 WKS ON, 2 WKS OFF
     Dates: start: 201901
  2. POLY-VI-SOL WITH IRON [Concomitant]
     Active Substance: IRON\VITAMINS
  3. LASIX [Concomitant]
     Active Substance: FUROSEMIDE
  4. KEPPRA [Concomitant]
     Active Substance: LEVETIRACETAM
  5. PULMICORT TURBUHALER [Concomitant]
     Active Substance: BUDESONIDE
  6. HIZENTRA [Concomitant]
     Active Substance: HUMAN IMMUNOGLOBULIN G
  7. VITAMIN D-400 [Concomitant]
  8. CALCIUM CARBONATE. [Concomitant]
     Active Substance: CALCIUM CARBONATE
  9. POTASSIUM [Concomitant]
     Active Substance: POTASSIUM
  10. ITRACONAZOLE. [Concomitant]
     Active Substance: ITRACONAZOLE
  11. SILVER SULFADIAZINE. [Concomitant]
     Active Substance: SILVER SULFADIAZINE
  12. ALBUTEROL SULFATE. [Concomitant]
     Active Substance: ALBUTEROL SULFATE
  13. GLYCOPYRROLATE. [Concomitant]
     Active Substance: GLYCOPYRROLATE
  14. ZYRTEC [Concomitant]
     Active Substance: CETIRIZINE HYDROCHLORIDE
  15. OMEPRAZOLE-SODIUM BICARBONATE [Concomitant]
     Active Substance: OMEPRAZOLE\SODIUM BICARBONATE
  16. AZITHROMYCIN ANHYDROUS. [Concomitant]
     Active Substance: AZITHROMYCIN ANHYDROUS
  17. NYSTATIN-TRIAMCINOLONE [Concomitant]
  18. CALCITRIOL. [Concomitant]
     Active Substance: CALCITRIOL
  19. ENALAPRIL-HYDROCLOROTHIAZIDE [Concomitant]

REACTIONS (3)
  - Off label use [Unknown]
  - B-lymphocyte count decreased [Unknown]
  - Chemotherapy [Recovered/Resolved]

NARRATIVE: CASE EVENT DATE: 20190507
